FAERS Safety Report 23163041 (Version 1)
Quarter: 2023Q4

REPORT INFORMATION
  Report Type: Spontaneous
  Country: IR (occurrence: IR)
  Receive Date: 20231109
  Receipt Date: 20231109
  Transmission Date: 20240110
  Serious: Yes (Hospitalization, Other)
  Sender: FDA-Public Use
  Company Number: IR-STRIDES ARCOLAB LIMITED-2023SP016557

PATIENT
  Age: 34 Year
  Sex: Female

DRUGS (5)
  1. ETOPOSIDE [Suspect]
     Active Substance: ETOPOSIDE
     Indication: Teratoma
     Dosage: UNK
     Route: 065
     Dates: start: 2022
  2. LETROZOLE [Suspect]
     Active Substance: LETROZOLE
     Indication: Infertility female
     Dosage: UNK
     Route: 065
     Dates: start: 2022
  3. CISPLATIN [Suspect]
     Active Substance: CISPLATIN
     Indication: Teratoma
     Dosage: UNK
     Route: 065
     Dates: start: 2022
  4. BLEOMYCIN [Suspect]
     Active Substance: BLEOMYCIN SULFATE
     Indication: Teratoma
     Dosage: UNK
     Route: 065
     Dates: start: 2022
  5. Cinnal f [Concomitant]
     Indication: Ovulation induction
     Dosage: UNK; HIGH DOSE
     Route: 065
     Dates: start: 2022, end: 2022

REACTIONS (4)
  - Neuropathy peripheral [Unknown]
  - Infection [Unknown]
  - Drug ineffective [Unknown]
  - Off label use [Unknown]

NARRATIVE: CASE EVENT DATE: 20220101
